FAERS Safety Report 4424288-6 (Version None)
Quarter: 2004Q3

REPORT INFORMATION
  Report Type: 
  Country: None (occurrence: None)
  Receive Date: 20040715
  Receipt Date: 20040420
  Transmission Date: 20050211
  Serious: Yes (Hospitalization)
  Sender: FDA-Public Use
  Company Number: 2004209907US

PATIENT
  Age: 61 Year
  Sex: Female

DRUGS (3)
  1. CELEBREX [Suspect]
     Indication: ARTHRITIS
     Dosage: BID,
     Dates: start: 20020101
  2. DOXEPIN (DOXEPIN) [Concomitant]
  3. NORVASC [Concomitant]

REACTIONS (1)
  - CHEST PAIN [None]
